FAERS Safety Report 24722489 (Version 1)
Quarter: 2024Q4

REPORT INFORMATION
  Report Type: Spontaneous
  Country: TH (occurrence: TH)
  Receive Date: 20241211
  Receipt Date: 20241211
  Transmission Date: 20250115
  Serious: Yes (Hospitalization)
  Sender: ELI LILLY AND COMPANY
  Company Number: TH-ELI_LILLY_AND_COMPANY-TH202412003178

PATIENT
  Age: 54 Year
  Sex: Male

DRUGS (1)
  1. TRULICITY [Suspect]
     Active Substance: DULAGLUTIDE
     Indication: Product used for unknown indication
     Dosage: 1.5 MG, WEEKLY (1/W)
     Route: 065
     Dates: start: 2023, end: 20241112

REACTIONS (3)
  - Pulmonary oedema [Unknown]
  - Injection site vesicles [Unknown]
  - Injection site mass [Unknown]

NARRATIVE: CASE EVENT DATE: 20241101
